FAERS Safety Report 9705966 (Version 1)
Quarter: 2013Q4

REPORT INFORMATION
  Report Type: Spontaneous
  Country: FR (occurrence: FR)
  Receive Date: 20131122
  Receipt Date: 20131122
  Transmission Date: 20140711
  Serious: Yes (Life-Threatening, Hospitalization)
  Sender: FDA-Public Use
  Company Number: FR-GLAXOSMITHKLINE-B0943161A

PATIENT
  Age: 88 Year
  Sex: Male
  Weight: 52 kg

DRUGS (5)
  1. ARIXTRA [Suspect]
     Indication: PULMONARY EMBOLISM
     Dosage: 7.5MG PER DAY
     Route: 058
     Dates: start: 20130830, end: 20130928
  2. INEXIUM [Concomitant]
     Dosage: 1TAB PER DAY
     Route: 048
  3. MOTILIUM [Concomitant]
     Dosage: 2TAB PER DAY
     Route: 048
  4. GAVISCON [Concomitant]
  5. ATHYMIL [Concomitant]

REACTIONS (7)
  - Haematemesis [Recovered/Resolved]
  - Circulatory collapse [Recovered/Resolved]
  - Incorrect drug administration duration [Unknown]
  - Melaena [Unknown]
  - Oesophageal ulcer haemorrhage [Unknown]
  - Device dislocation [Unknown]
  - Gastrointestinal haemorrhage [Unknown]
